FAERS Safety Report 10056654 (Version 1)
Quarter: 2014Q2

REPORT INFORMATION
  Report Type: Spontaneous
  Country: US (occurrence: US)
  Receive Date: 20140403
  Receipt Date: 20140403
  Transmission Date: 20141212
  Serious: Yes (Other)
  Sender: FDA-Public Use
  Company Number: US-PFIZER INC-2014092890

PATIENT
  Sex: Female

DRUGS (1)
  1. NEURONTIN [Suspect]
     Dosage: 300 MG, UNK

REACTIONS (3)
  - Palpitations [Unknown]
  - Chest pain [Unknown]
  - Psychomotor hyperactivity [Unknown]
